FAERS Safety Report 25718258 (Version 2)
Quarter: 2025Q3

REPORT INFORMATION
  Report Type: Spontaneous
  Country: EU (occurrence: EU)
  Receive Date: 20250823
  Receipt Date: 20250918
  Transmission Date: 20251021
  Serious: Yes (Other)
  Sender: ALEXION PHARMACEUTICALS
  Company Number: EU-AstraZeneca-CH-00925798AP

PATIENT
  Age: 23 Year
  Sex: Male

DRUGS (7)
  1. TEZSPIRE [Suspect]
     Active Substance: TEZEPELUMAB-EKKO
     Indication: Asthma
     Dosage: 210 MILLIGRAM, QMONTH
     Dates: start: 20250624
  2. TEZSPIRE [Suspect]
     Active Substance: TEZEPELUMAB-EKKO
  3. BECLOMETHASONE DIPROPIONATE [Concomitant]
     Active Substance: BECLOMETHASONE DIPROPIONATE
  4. SERETIDE [Concomitant]
     Active Substance: FLUTICASONE PROPIONATE\SALMETEROL XINAFOATE
  5. CORTISONE [Concomitant]
     Active Substance: CORTISONE
  6. EPINEPHRINE [Concomitant]
     Active Substance: EPINEPHRINE
  7. VENTOLIN [Concomitant]
     Active Substance: ALBUTEROL SULFATE

REACTIONS (5)
  - Product dose omission issue [Unknown]
  - Off label use [Unknown]
  - Exposure via skin contact [Unknown]
  - Product distribution issue [Unknown]
  - Injection site haematoma [Unknown]

NARRATIVE: CASE EVENT DATE: 20250804
